FAERS Safety Report 9155724 (Version 28)
Quarter: 2015Q3

REPORT INFORMATION
  Report Type: Report from Study
  Country: AL (occurrence: AL)
  Receive Date: 20130311
  Receipt Date: 20150804
  Transmission Date: 20151125
  Serious: Yes (Life-Threatening)
  Sender: FDA-Public Use
  Company Number: AL-ROCHE-1199164

PATIENT
  Age: 59 Year
  Sex: Male
  Weight: 70.5 kg

DRUGS (3)
  1. VEMURAFENIB [Suspect]
     Active Substance: VEMURAFENIB
     Indication: MALIGNANT MELANOMA
     Dosage: LAST DOSE PRIOR TO SAE 09/JUL/2012
     Route: 048
     Dates: start: 20120607
  2. VEMURAFENIB [Suspect]
     Active Substance: VEMURAFENIB
     Dosage: LAST DOSE PRIOR TO SAE:23/DEC/2012
     Route: 048
     Dates: start: 20120728, end: 20121223
  3. VEMURAFENIB [Suspect]
     Active Substance: VEMURAFENIB
     Dosage: LAST DOES PRIOR TO SAE 27/JUL/2012
     Route: 048
     Dates: start: 20120710

REACTIONS (1)
  - Cerebral haematoma [Recovered/Resolved with Sequelae]

NARRATIVE: CASE EVENT DATE: 20121222
